FAERS Safety Report 10234500 (Version 3)
Quarter: 2015Q3

REPORT INFORMATION
  Report Type: Spontaneous
  Country: US (occurrence: US)
  Receive Date: 20140613
  Receipt Date: 20150817
  Transmission Date: 20151125
  Serious: No
  Sender: FDA-Public Use
  Company Number: US-GILEAD-2014-0105143

PATIENT
  Age: 84 Year
  Sex: Female

DRUGS (4)
  1. LETAIRIS [Suspect]
     Active Substance: AMBRISENTAN
     Indication: PRODUCT USED FOR UNKNOWN INDICATION
     Dosage: 10 MG, QD
     Route: 065
     Dates: start: 20130907
  2. LETAIRIS [Suspect]
     Active Substance: AMBRISENTAN
     Dates: start: 20130927
  3. RIOCIGUAT [Concomitant]
     Active Substance: RIOCIGUAT
  4. ADEMPAS [Concomitant]
     Active Substance: RIOCIGUAT

REACTIONS (6)
  - Pallor [Unknown]
  - Hypotension [Unknown]
  - Syncope [Unknown]
  - Disturbance in attention [Unknown]
  - Presyncope [Unknown]
  - Dizziness [Unknown]
